FAERS Safety Report 11351174 (Version 1)
Quarter: 2015Q3

REPORT INFORMATION
  Report Type: Spontaneous
  Country: US (occurrence: None)
  Receive Date: 20150806
  Receipt Date: 20150806
  Transmission Date: 20151125
  Serious: Yes (Other)
  Sender: FDA-Public Use
  Company Number: None

PATIENT
  Age: 62 Year
  Sex: Female
  Weight: 88.45 kg

DRUGS (10)
  1. HCTZ [Concomitant]
     Active Substance: HYDROCHLOROTHIAZIDE
  2. AZASAN [Concomitant]
     Active Substance: AZATHIOPRINE
  3. VITAMIN D [Concomitant]
     Active Substance: CHOLECALCIFEROL
  4. DSS [Concomitant]
     Active Substance: DOCUSATE SODIUM
  5. SINGULAIR [Concomitant]
     Active Substance: MONTELUKAST SODIUM
  6. VALSARTAN. [Concomitant]
     Active Substance: VALSARTAN
  7. PREDNISONE. [Concomitant]
     Active Substance: PREDNISONE
  8. NEXIUM [Concomitant]
     Active Substance: ESOMEPRAZOLE MAGNESIUM
  9. RECLAST [Suspect]
     Active Substance: ZOLEDRONIC ACID
     Indication: DRUG THERAPY
     Dosage: 20 MG IV INFUSION ONCE A YEAR
     Route: 042
     Dates: start: 20150731
  10. ASA-81 [Concomitant]

REACTIONS (3)
  - Gait disturbance [None]
  - Groin pain [None]
  - Malaise [None]

NARRATIVE: CASE EVENT DATE: 20150801
